FAERS Safety Report 11181687 (Version 2)
Quarter: 2015Q3

REPORT INFORMATION
  Report Type: Spontaneous
  Country: FR (occurrence: FR)
  Receive Date: 20150611
  Receipt Date: 20150824
  Transmission Date: 20151125
  Serious: Yes (Hospitalization)
  Sender: FDA-Public Use
  Company Number: FR-009507513-1506FRA004015

PATIENT
  Age: 4 Year
  Sex: Female
  Weight: 13 kg

DRUGS (1)
  1. STROMECTOL [Suspect]
     Active Substance: IVERMECTIN
     Indication: ACARODERMATITIS
     Dosage: 4 TABLETS, ONCE
     Route: 048
     Dates: start: 20150602, end: 20150602

REACTIONS (4)
  - Drug administration error [Unknown]
  - Accidental overdose [Unknown]
  - Pyrexia [Unknown]
  - Vomiting [Unknown]

NARRATIVE: CASE EVENT DATE: 20150602
